FAERS Safety Report 16753408 (Version 1)
Quarter: 2019Q3

REPORT INFORMATION
  Report Type: Spontaneous
  Country: PT (occurrence: PT)
  Receive Date: 20190829
  Receipt Date: 20190829
  Transmission Date: 20191005
  Serious: Yes (Other)
  Sender: FDA-Public Use
  Company Number: PT-ACCORD-153160

PATIENT
  Age: 45 Year
  Sex: Female

DRUGS (7)
  1. MYCOPHENOLIC ACID ACCORD [Suspect]
     Active Substance: MYCOPHENOLIC ACID
     Indication: PROPHYLAXIS AGAINST TRANSPLANT REJECTION
     Dosage: 720MG + 360 MG
     Route: 048
     Dates: start: 20190418, end: 20190813
  2. PERINDOPRIL [Concomitant]
     Active Substance: PERINDOPRIL
     Route: 048
  3. TACROLIMUS. [Concomitant]
     Active Substance: TACROLIMUS
  4. METHYLPREDNISONE [Concomitant]
     Active Substance: METHYLPREDNISOLONE
  5. ETALPHA [Concomitant]
     Active Substance: ALFACALCIDOL
     Route: 048
  6. NEORECORMON [Concomitant]
     Active Substance: ERYTHROPOIETIN
  7. DAGRAVIT B COMPLEX [Concomitant]

REACTIONS (2)
  - Leukopenia [Recovering/Resolving]
  - Product substitution issue [Unknown]

NARRATIVE: CASE EVENT DATE: 20190418
